FAERS Safety Report 13496952 (Version 1)
Quarter: 2017Q2

REPORT INFORMATION
  Report Type: Not Available
  Country: US (occurrence: US)
  Receive Date: 20170428
  Receipt Date: 20170428
  Transmission Date: 20170830
  Serious: Yes (Other)
  Sender: FDA-Public Use
  Company Number: US-ANIPHARMA-2017-US-004365

PATIENT
  Age: 75 Year
  Sex: Female
  Weight: 102.97 kg

DRUGS (3)
  1. REGRANEX [Suspect]
     Active Substance: BECAPLERMIN
     Dosage: ONCE DAILY
     Route: 061
     Dates: start: 20170316, end: 20170321
  2. LEVAQUIN [Suspect]
     Active Substance: LEVOFLOXACIN
     Route: 065
  3. VANCOMYCIN HYDROCHLORIDE (NON-SPECIFIC) [Suspect]
     Active Substance: VANCOMYCIN HYDROCHLORIDE
     Route: 065

REACTIONS (5)
  - Rash [Recovered/Resolved]
  - Osteomyelitis [Unknown]
  - Toe amputation [Unknown]
  - Hypersensitivity [Unknown]
  - Drug ineffective [Unknown]

NARRATIVE: CASE EVENT DATE: 201703
